FAERS Safety Report 8812037 (Version 1)
Quarter: 2012Q4

REPORT INFORMATION
  Report Type: 
  Country: US (occurrence: US)
  Receive Date: 20120927
  Receipt Date: 20120927
  Transmission Date: 20130627
  Serious: Yes (Other)
  Sender: FDA-Public Use
  Company Number: CHPA2012US020186

PATIENT
  Age: 65 Year
  Sex: Female

DRUGS (1)
  1. BENEFIBER W/ WHEAT DEXTRIN [Suspect]
     Indication: COLONIC POLYP
     Dosage: 3 TSP, BID
     Route: 048
     Dates: start: 2007

REACTIONS (6)
  - Memory impairment [Not Recovered/Not Resolved]
  - Accident [Recovered/Resolved]
  - Thyroid disorder [Not Recovered/Not Resolved]
  - Drug hypersensitivity [Not Recovered/Not Resolved]
  - Off label use [Unknown]
  - Incorrect dose administered [Unknown]
